FAERS Safety Report 4637214-1 (Version None)
Quarter: 2005Q2

REPORT INFORMATION
  Report Type: 
  Country: None (occurrence: None)
  Receive Date: 20050325
  Receipt Date: 20041201
  Transmission Date: 20051028
  Serious: No
  Sender: FDA-Public Use
  Company Number: USA041285027

PATIENT
  Age: 49 Year
  Sex: Female

DRUGS (3)
  1. FORTEO [Suspect]
     Indication: OSTEOPOROSIS
     Dates: start: 20041122
  2. SYNTHROID [Concomitant]
  3. IBUPROFEN [Concomitant]

REACTIONS (2)
  - INJECTION SITE PAIN [None]
  - NASOPHARYNGITIS [None]
